FAERS Safety Report 4341948-6 (Version None)
Quarter: 2004Q2

REPORT INFORMATION
  Report Type: 
  Country: None (occurrence: None)
  Receive Date: 20040420
  Receipt Date: 20040331
  Transmission Date: 20050107
  Serious: Yes (Other)
  Sender: FDA-Public Use
  Company Number: PHBS2004JP04518

PATIENT
  Age: 72 Year
  Sex: Female

DRUGS (7)
  1. PARLODEL [Suspect]
     Indication: PARKINSON'S DISEASE
     Dosage: UNK, UNK
     Route: 048
  2. PARLODEL [Suspect]
     Route: 048
  3. PARLODEL [Suspect]
     Route: 048
  4. PARLODEL [Suspect]
     Route: 048
  5. PARLODEL [Suspect]
     Route: 047
  6. PARLODEL [Suspect]
     Route: 048
  7. AMOXAPINE [Concomitant]
     Indication: PARKINSON'S DISEASE
     Dosage: 200 MG, UNK
     Route: 048

REACTIONS (9)
  - ABDOMINAL PAIN [None]
  - CARDIOVASCULAR DISORDER [None]
  - CEREBRAL ATROPHY [None]
  - DEMENTIA [None]
  - DIARRHOEA [None]
  - DRUG INEFFECTIVE [None]
  - FEELING JITTERY [None]
  - HALLUCINATION, VISUAL [None]
  - MENTAL DISORDER [None]
